FAERS Safety Report 23145069 (Version 5)
Quarter: 2024Q4

REPORT INFORMATION
  Report Type: Spontaneous
  Country: DE (occurrence: DE)
  Receive Date: 20231103
  Receipt Date: 20241010
  Transmission Date: 20250115
  Serious: Yes (Hospitalization, Other)
  Sender: SANDOZ
  Company Number: DE-JNJFOC-20230510845

PATIENT
  Age: 85 Year
  Sex: Female
  Weight: 40 kg

DRUGS (35)
  1. DEXAMETHASONE [Suspect]
     Active Substance: DEXAMETHASONE
     Indication: Plasma cell myeloma
     Dosage: 20 MG, QD (CYCLE 1,8,15,22)
     Route: 042
     Dates: start: 20230322
  2. DEXAMETHASONE [Suspect]
     Active Substance: DEXAMETHASONE
     Dosage: 20 MG, QD (ON CYCLE DAYS 1,8,15,22 OF A 28 DAY CYCLE )
     Route: 042
     Dates: start: 20230322, end: 20231213
  3. DEXAMETHASONE [Suspect]
     Active Substance: DEXAMETHASONE
     Dosage: 20 MG
     Route: 042
     Dates: start: 20230510
  4. DEXAMETHASONE [Suspect]
     Active Substance: DEXAMETHASONE
     Dosage: 20 MG
     Route: 042
     Dates: start: 20230517
  5. DEXAMETHASONE [Suspect]
     Active Substance: DEXAMETHASONE
     Dosage: 20 MG
     Route: 042
     Dates: start: 20230524
  6. DEXAMETHASONE [Suspect]
     Active Substance: DEXAMETHASONE
     Dosage: 20 MG (CYCLE 1)
     Route: 042
     Dates: start: 20230329
  7. DEXAMETHASONE [Suspect]
     Active Substance: DEXAMETHASONE
     Dosage: 20 MG (CYCLE 1)
     Route: 042
     Dates: start: 20230405
  8. DEXAMETHASONE [Suspect]
     Active Substance: DEXAMETHASONE
     Dosage: 20 MG (CYCLE 1)
     Route: 042
     Dates: start: 20230412
  9. DEXAMETHASONE [Suspect]
     Active Substance: DEXAMETHASONE
     Dosage: 20 MG (CYCLE 2)
     Route: 042
     Dates: start: 20230419
  10. DARZALEX [Suspect]
     Active Substance: DARATUMUMAB
     Dosage: 1800 MG, QD (1800 MG/DAY CYCLE 1, 8, 15, 22)
     Route: 059
     Dates: start: 20230322
  11. DARZALEX [Suspect]
     Active Substance: DARATUMUMAB
     Indication: Plasma cell myeloma
     Dosage: 1800 MG, QD (CYCLE 1, 8, 15, 22)
     Route: 058
     Dates: start: 20230322
  12. DARZALEX [Suspect]
     Active Substance: DARATUMUMAB
     Dosage: 1800 MG
     Route: 058
     Dates: start: 20230510
  13. DARZALEX [Suspect]
     Active Substance: DARATUMUMAB
     Dosage: 1800 MG
     Route: 058
     Dates: start: 20230517
  14. DARZALEX [Suspect]
     Active Substance: DARATUMUMAB
     Dosage: 1800 MG
     Route: 059
     Dates: start: 20230510
  15. DARZALEX [Suspect]
     Active Substance: DARATUMUMAB
     Dosage: 1800 MG
     Route: 059
     Dates: start: 20230517
  16. DARZALEX [Suspect]
     Active Substance: DARATUMUMAB
     Dosage: 1800 MG (CYCLE 1)
     Route: 058
     Dates: start: 20230329
  17. DARZALEX [Suspect]
     Active Substance: DARATUMUMAB
     Dosage: 1800 MG (CYCLE 1)
     Route: 058
     Dates: start: 20230405
  18. DARZALEX [Suspect]
     Active Substance: DARATUMUMAB
     Dosage: 1800 MG (CYCLE 1)
     Route: 058
     Dates: start: 20230412
  19. DARZALEX [Suspect]
     Active Substance: DARATUMUMAB
     Dosage: 1800 MG (CYCLE 1)
     Route: 059
     Dates: start: 20230329
  20. DARZALEX [Suspect]
     Active Substance: DARATUMUMAB
     Dosage: 1800 MG (CYCLE 1)
     Route: 059
     Dates: start: 20230405
  21. DARZALEX [Suspect]
     Active Substance: DARATUMUMAB
     Dosage: 1800 MG (CYCLE 1)
     Route: 059
     Dates: start: 20230412
  22. DARZALEX [Suspect]
     Active Substance: DARATUMUMAB
     Dosage: 1800 MG (CYCLE 2)
     Route: 058
     Dates: start: 20230419
  23. DARZALEX [Suspect]
     Active Substance: DARATUMUMAB
     Dosage: 1800 MG (CYCLE 2)
     Route: 059
     Dates: start: 20230419
  24. LENALIDOMIDE [Suspect]
     Active Substance: LENALIDOMIDE
     Dosage: 10 MG, QD (ON CYCLE DAYS 1-21 OF A 28 DAY CYCLE)
     Route: 048
     Dates: start: 20230524
  25. LENALIDOMIDE [Suspect]
     Active Substance: LENALIDOMIDE
     Indication: Plasma cell myeloma
     Dosage: 15 MG, QD (CYCLE 1-21)
     Route: 048
     Dates: start: 20230322, end: 20230411
  26. LENALIDOMIDE [Suspect]
     Active Substance: LENALIDOMIDE
     Dosage: UNK
     Route: 048
     Dates: start: 20230510, end: 20230516
  27. LENALIDOMIDE [Suspect]
     Active Substance: LENALIDOMIDE
     Dosage: 15 MG (CYCLE 2)
     Route: 048
     Dates: start: 20230419, end: 20230424
  28. BISOPROLOL [Concomitant]
     Active Substance: BISOPROLOL\BISOPROLOL FUMARATE
     Indication: Product used for unknown indication
     Dosage: 2.5 MG
     Route: 065
  29. BISOPROLOL [Concomitant]
     Active Substance: BISOPROLOL\BISOPROLOL FUMARATE
     Indication: Atrial fibrillation
     Dosage: UNK
     Route: 065
  30. EDOXABAN TOSYLATE [Concomitant]
     Active Substance: EDOXABAN TOSYLATE
     Indication: Product used for unknown indication
     Dosage: 30 MG
     Route: 065
     Dates: start: 201912
  31. EDOXABAN TOSYLATE [Concomitant]
     Active Substance: EDOXABAN TOSYLATE
     Indication: Atrial fibrillation
     Dosage: 30.000MG
     Route: 048
     Dates: start: 201912
  32. VALSARTAN [Concomitant]
     Active Substance: VALSARTAN
     Dosage: 80 MG
     Route: 065
     Dates: start: 201912
  33. VALSARTAN [Concomitant]
     Active Substance: VALSARTAN
     Dosage: 80.000MG
     Route: 048
     Dates: start: 201912
  34. VALSARTAN [Concomitant]
     Active Substance: VALSARTAN
     Indication: Atrial fibrillation
     Dosage: UNK
     Route: 065
  35. VALSARTAN [Concomitant]
     Active Substance: VALSARTAN
     Dosage: UNK
     Route: 065

REACTIONS (9)
  - Pancytopenia [Recovered/Resolved]
  - Atrial fibrillation [Recovered/Resolved]
  - Leukopenia [Recovered/Resolved]
  - Leukopenia [Recovered/Resolved]
  - Aortic stenosis [Unknown]
  - Anaemia [Recovered/Resolved]
  - Anaemia [Recovered/Resolved]
  - Dyspnoea [Recovered/Resolved]
  - Nausea [Recovered/Resolved]

NARRATIVE: CASE EVENT DATE: 20230412
